FAERS Safety Report 18968132 (Version 3)
Quarter: 2022Q4

REPORT INFORMATION
  Report Type: Spontaneous
  Country: KR (occurrence: KR)
  Receive Date: 20210304
  Receipt Date: 20221111
  Transmission Date: 20230113
  Serious: Yes (Congenital Anomaly, Other)
  Sender: FDA-Public Use
  Company Number: KR-GLAXOSMITHKLINE-KR2021APC053474

PATIENT
  Sex: Female

DRUGS (7)
  1. REQUIP [Suspect]
     Active Substance: ROPINIROLE HYDROCHLORIDE
     Indication: Parkinson^s disease
     Dosage: 2 MG
  2. REQUIP [Suspect]
     Active Substance: ROPINIROLE HYDROCHLORIDE
     Dosage: 6 MG
  3. REQUIP [Suspect]
     Active Substance: ROPINIROLE HYDROCHLORIDE
     Dosage: 8 MG, QD, PO
     Route: 048
     Dates: start: 20210127, end: 20210224
  4. REQUIP [Suspect]
     Active Substance: ROPINIROLE HYDROCHLORIDE
     Dosage: 4 MG
  5. REQUIP [Suspect]
     Active Substance: ROPINIROLE HYDROCHLORIDE
     Indication: Product used for unknown indication
     Dosage: 2 MG, PO
     Route: 048
  6. CARBIDOPA\LEVODOPA [Suspect]
     Active Substance: CARBIDOPA\LEVODOPA
     Indication: Parkinsonism
     Dosage: UNK
  7. AZILECT [Suspect]
     Active Substance: RASAGILINE MESYLATE
     Indication: Parkinsonism
     Dosage: UNK

REACTIONS (17)
  - Hallucination [Unknown]
  - Rash [Unknown]
  - Pruritus [Unknown]
  - Blister [Unknown]
  - Feeling hot [Unknown]
  - Pyrexia [Unknown]
  - Anger [Unknown]
  - Chest discomfort [Unknown]
  - Obsessive-compulsive disorder [Unknown]
  - Dry eye [Unknown]
  - Dry mouth [Unknown]
  - Livedo reticularis [Unknown]
  - Skin discolouration [Unknown]
  - Hypoaesthesia [Unknown]
  - Xerophthalmia [Unknown]
  - Wrong technique in product usage process [Unknown]
  - Off label use [Unknown]
